FAERS Safety Report 15763907 (Version 1)
Quarter: 2018Q4

REPORT INFORMATION
  Report Type: Spontaneous
  Country: FR (occurrence: FR)
  Receive Date: 20181227
  Receipt Date: 20181227
  Transmission Date: 20190205
  Serious: Yes (Life-Threatening)
  Sender: FDA-Public Use
  Company Number: FR-TEVA-2018-FR-992030

PATIENT
  Age: 52 Year
  Sex: Female
  Weight: 61 kg

DRUGS (8)
  1. INEXIUM 20 MG, COMPRIM? GASTRO-R?SISTANT [Concomitant]
     Active Substance: ESOMEPRAZOLE MAGNESIUM
  2. PLAQUENIL 200 MG, COMPRIM? ENROB? [Concomitant]
  3. DILTIAZEM (CHLORHYDRATE DE) [Suspect]
     Active Substance: DILTIAZEM HYDROCHLORIDE
     Indication: TOXICITY TO VARIOUS AGENTS
     Route: 048
     Dates: start: 20180123, end: 20180123
  4. ACUPAN [Suspect]
     Active Substance: NEFOPAM HYDROCHLORIDE
     Indication: TOXICITY TO VARIOUS AGENTS
     Route: 030
     Dates: start: 20180123, end: 20180123
  5. LAMALINE (ATROPA BELLADONNA EXTRACT\CAFFEINE\PAPAVER SOMNIFERUM TINCTURE\PARACETAMOL) [Suspect]
     Active Substance: ACETAMINOPHEN\BELLADONNA LEAF\CAFFEINE\OPIUM
     Indication: TOXICITY TO VARIOUS AGENTS
     Route: 048
     Dates: start: 20180123, end: 20180123
  6. CYMBALTA [Concomitant]
     Active Substance: DULOXETINE HYDROCHLORIDE
  7. CORTANCYL [Concomitant]
     Active Substance: PREDNISONE
  8. NORDAZ 15 MG, COMPRIM? QUADRIS?CABLE [Concomitant]

REACTIONS (8)
  - Metabolic acidosis [Recovered/Resolved]
  - Vomiting [Recovered/Resolved]
  - Hypotension [Recovered/Resolved]
  - Bradycardia [Recovered/Resolved]
  - Altered state of consciousness [Recovered/Resolved]
  - Hyperglycaemia [Recovered/Resolved]
  - Toxicity to various agents [Recovered/Resolved]
  - Hypocalcaemia [Recovered/Resolved]

NARRATIVE: CASE EVENT DATE: 20180123
